FAERS Safety Report 5271883-0 (Version None)
Quarter: 2007Q1

REPORT INFORMATION
  Report Type: 
  Country: None (occurrence: None)
  Receive Date: 20070316
  Receipt Date: 20070302
  Transmission Date: 20070707
  Serious: Yes (Other)
  Sender: FDA-Public Use
  Company Number: ST-2007-009615

PATIENT
  Age: 56 Year
  Sex: Male
  Weight: 72 kg

DRUGS (2)
  1. OLMETEC [Suspect]
     Indication: ESSENTIAL HYPERTENSION
     Dosage: 20 MG QD;PO
     Route: 048
     Dates: start: 20050720
  2. CALBLOCK [Concomitant]

REACTIONS (1)
  - INTESTINAL OBSTRUCTION [None]
